FAERS Safety Report 16382976 (Version 1)
Quarter: 2019Q2

REPORT INFORMATION
  Report Type: Spontaneous
  Country: DE (occurrence: DE)
  Receive Date: 20190603
  Receipt Date: 20190603
  Transmission Date: 20190711
  Serious: Yes (Hospitalization, Other)
  Sender: FDA-Public Use
  Company Number: DE-ALEMBIC PHARMACUETICALS LIMITED-2019SCAL000329

PATIENT

DRUGS (6)
  1. HYDROCHLOROTHIAZIDE. [Suspect]
     Active Substance: HYDROCHLOROTHIAZIDE
     Indication: HYPERTENSION
     Dosage: 12.5 MG, QD
  2. ENALAPRIL [Suspect]
     Active Substance: ENALAPRIL
     Dosage: 5 MG, QD
  3. HYPNOREX [Interacting]
     Active Substance: LITHIUM CARBONATE
     Dosage: 1 GRAM, QD FOR TWO WEEKS
  4. HYPNOREX [Interacting]
     Active Substance: LITHIUM CARBONATE
     Dosage: 0.6 GRAM, QD
  5. ENALAPRIL [Suspect]
     Active Substance: ENALAPRIL
     Indication: HYPERTENSION
     Dosage: 10 MG, QD
     Dates: start: 2012
  6. HYPNOREX [Interacting]
     Active Substance: LITHIUM CARBONATE
     Indication: BIPOLAR DISORDER
     Dosage: 1 GRAM, QD FOR ,,ORE THAN 20 YEARS

REACTIONS (10)
  - Tremor [Recovering/Resolving]
  - Drug level increased [Recovering/Resolving]
  - Ataxia [Recovering/Resolving]
  - Acute kidney injury [Recovering/Resolving]
  - Depression [Recovering/Resolving]
  - Toxicity to various agents [Recovering/Resolving]
  - Asthenia [Recovering/Resolving]
  - Drug interaction [Unknown]
  - Disturbance in attention [Recovering/Resolving]
  - Dizziness [Recovering/Resolving]
